FAERS Safety Report 7656563-6 (Version None)
Quarter: 2011Q3

REPORT INFORMATION
  Report Type: 
  Country: None (occurrence: None)
  Receive Date: 20110804
  Receipt Date: 20110214
  Transmission Date: 20111222
  Serious: No
  Sender: FDA-Public Use
  Company Number: US-BAUSCH-2011BL001019

PATIENT
  Age: 71 Year
  Sex: Male

DRUGS (11)
  1. COLLYRIUM EYE WASH [Suspect]
     Indication: EYE PRURITUS
     Route: 047
     Dates: start: 20110207, end: 20110208
  2. LISINOPRIL [Concomitant]
     Indication: CARDIAC DISORDER
  3. DULCOLAX [Concomitant]
     Indication: CONSTIPATION
  4. OPCON-A [Suspect]
     Route: 047
     Dates: start: 20110207, end: 20110208
  5. METOPROLOL TARTRATE [Concomitant]
     Indication: CARDIAC DISORDER
  6. COLLYRIUM EYE WASH [Suspect]
     Indication: OCULAR HYPERAEMIA
     Route: 047
     Dates: start: 20110207, end: 20110208
  7. SIMVASTATIN [Concomitant]
     Indication: CARDIAC DISORDER
  8. AMLODIPINE [Concomitant]
  9. OMEPRAZOLE [Concomitant]
     Indication: GASTROOESOPHAGEAL REFLUX DISEASE
  10. ASPIRIN [Concomitant]
     Indication: CARDIAC DISORDER
  11. DOXAZOSIN MESYLATE [Concomitant]
     Indication: CARDIAC DISORDER

REACTIONS (7)
  - EYE IRRITATION [None]
  - OCULAR HYPERAEMIA [None]
  - CHEMICAL INJURY [None]
  - SWELLING FACE [None]
  - EYE PRURITUS [None]
  - EYELID EXFOLIATION [None]
  - DRUG INEFFECTIVE [None]
